FAERS Safety Report 21386899 (Version 1)
Quarter: 2022Q3

REPORT INFORMATION
  Report Type: Spontaneous
  Country: AR (occurrence: AR)
  Receive Date: 20220928
  Receipt Date: 20220928
  Transmission Date: 20221026
  Serious: Yes (Death, Hospitalization)
  Sender: FDA-Public Use
  Company Number: AR-ELI_LILLY_AND_COMPANY-AR202209012799

PATIENT
  Age: 55 Year
  Sex: Female

DRUGS (1)
  1. VERZENIO [Suspect]
     Active Substance: ABEMACICLIB
     Indication: Breast cancer
     Dosage: 450 MG, UNKNOWN
     Route: 048
     Dates: start: 20220910, end: 20220913

REACTIONS (2)
  - Intra-abdominal fluid collection [Fatal]
  - Overdose [Unknown]

NARRATIVE: CASE EVENT DATE: 20220913
